FAERS Safety Report 10503171 (Version 4)
Quarter: 2014Q4

REPORT INFORMATION
  Report Type: Spontaneous
  Country: US (occurrence: US)
  Receive Date: 20141007
  Receipt Date: 20141217
  Transmission Date: 20150528
  Serious: No
  Sender: FDA-Public Use
  Company Number: US-009507513-1409USA010973

PATIENT
  Age: 27 Year
  Sex: Female
  Weight: 75.28 kg

DRUGS (1)
  1. NEXPLANON [Suspect]
     Active Substance: ETONOGESTREL
     Dosage: UNK
     Route: 059
     Dates: start: 20130405, end: 20141210

REACTIONS (6)
  - Device breakage [Recovered/Resolved]
  - Device deployment issue [Recovered/Resolved]
  - Erythema [Unknown]
  - Implant site pain [Recovered/Resolved]
  - Device difficult to use [Recovered/Resolved]
  - Device extrusion [Recovered/Resolved]

NARRATIVE: CASE EVENT DATE: 20130405
